FAERS Safety Report 15120666 (Version 3)
Quarter: 2019Q4

REPORT INFORMATION
  Report Type: Report from Study
  Country: DE (occurrence: DE)
  Receive Date: 20180709
  Receipt Date: 20191216
  Transmission Date: 20200122
  Serious: Yes (Hospitalization, Other)
  Sender: FDA-Public Use
  Company Number: DE-TEVA-2018-DE-923105

PATIENT
  Age: 48 Year
  Sex: Male
  Weight: 76 kg

DRUGS (20)
  1. OXALIPLATIN. [Suspect]
     Active Substance: OXALIPLATIN
     Indication: COLORECTAL CANCER METASTATIC
     Route: 065
     Dates: start: 20180516, end: 20180814
  2. OXALIPLATIN. [Suspect]
     Active Substance: OXALIPLATIN
     Dosage: 135 MG
     Route: 065
     Dates: start: 20190226, end: 20190312
  3. FOLINIC ACID [Suspect]
     Active Substance: LEUCOVORIN
     Dosage: 790 MG
     Route: 065
     Dates: start: 20190226, end: 20190312
  4. VECTIBIX [Suspect]
     Active Substance: PANITUMUMAB
     Route: 042
     Dates: start: 20190326
  5. PLIAZON [Concomitant]
     Indication: PROPHYLAXIS
     Dosage: UNK UNK, AS NECESSARY
     Route: 061
     Dates: start: 20180516, end: 20181029
  6. FLUOROURACIL. [Suspect]
     Active Substance: FLUOROURACIL
     Dosage: 400 MG
     Route: 040
     Dates: start: 20190326
  7. OXALIPLATIN. [Suspect]
     Active Substance: OXALIPLATIN
     Dosage: 85 MG
     Route: 065
     Dates: start: 20190326
  8. FLUOROURACIL. [Suspect]
     Active Substance: FLUOROURACIL
     Indication: COLORECTAL CANCER METASTATIC
     Route: 042
     Dates: start: 20180516, end: 20181106
  9. FLUOROURACIL. [Suspect]
     Active Substance: FLUOROURACIL
     Dosage: 2400 MG
     Route: 042
     Dates: start: 20190326
  10. FOLINIC ACID [Suspect]
     Active Substance: LEUCOVORIN
     Indication: COLORECTAL CANCER METASTATIC
     Route: 065
     Dates: start: 20180516, end: 20181106
  11. VECTIBIX [Suspect]
     Active Substance: PANITUMUMAB
     Indication: COLORECTAL CANCER METASTATIC
     Dosage: 460 MG, UNK
     Route: 042
     Dates: start: 20180516, end: 20180529
  12. MONO EMBOLEX [Concomitant]
     Active Substance: CERTOPARIN SODIUM
     Indication: PROPHYLAXIS
     Route: 058
     Dates: start: 20180516
  13. DOXY M [Concomitant]
     Indication: PROPHYLAXIS
     Dosage: 400 MILLIGRAM DAILY;
     Route: 048
     Dates: start: 20180516, end: 20181017
  14. GLANDOMED [Concomitant]
     Indication: PROPHYLAXIS
     Dosage: 20 ML, BID
     Route: 048
     Dates: start: 20180516
  15. FOLINIC ACID [Suspect]
     Active Substance: LEUCOVORIN
     Dosage: 400 MG
     Route: 065
     Dates: start: 20190326
  16. MONO EMBOLEX [Concomitant]
     Active Substance: CERTOPARIN SODIUM
     Route: 058
     Dates: start: 20180412, end: 20180518
  17. VECTIBIX [Suspect]
     Active Substance: PANITUMUMAB
     Dosage: 480 MG
     Route: 042
     Dates: start: 20190226, end: 20190312
  18. FERROSANOL [Concomitant]
     Active Substance: FERROUS GLUCONATE
     Indication: ANAEMIA
     Dosage: 80 MG, TID TO 100 MG, QD
     Route: 048
     Dates: start: 20180514, end: 20181030
  19. FLUOROURACIL. [Suspect]
     Active Substance: FLUOROURACIL
     Route: 040
     Dates: start: 20180516, end: 20190312
  20. FLUOROURACIL. [Suspect]
     Active Substance: FLUOROURACIL
     Dosage: 475 MG
     Route: 042
     Dates: start: 20190226, end: 20190312

REACTIONS (9)
  - Lymphocyte count decreased [Recovered/Resolved]
  - Dermatitis acneiform [Not Recovered/Not Resolved]
  - Hypertension [Recovered/Resolved]
  - Epistaxis [Not Recovered/Not Resolved]
  - Infection [Recovered/Resolved]
  - Constipation [Not Recovered/Not Resolved]
  - Fatigue [Not Recovered/Not Resolved]
  - Mucosal inflammation [Not Recovered/Not Resolved]
  - Hypocalcaemia [Unknown]

NARRATIVE: CASE EVENT DATE: 20180517
